FAERS Safety Report 5965820-0 (Version None)
Quarter: 2008Q4

REPORT INFORMATION
  Report Type: 
  Country: None (occurrence: None)
  Receive Date: 20081121
  Receipt Date: 20081121
  Transmission Date: 20090506
  Serious: Yes (Death, Hospitalization)
  Sender: FDA-Public Use
  Company Number: None

PATIENT
  Sex: Male
  Weight: 75 kg

DRUGS (3)
  1. FLUDARABINE PHOSPHATE [Suspect]
  2. MELPHALAN [Suspect]
  3. SEE ATTACHMENT [Concomitant]

REACTIONS (7)
  - DIARRHOEA [None]
  - GRAFT VERSUS HOST DISEASE [None]
  - HYPOTENSION [None]
  - LETHARGY [None]
  - NAUSEA [None]
  - TONIC CLONIC MOVEMENTS [None]
  - VOMITING [None]
